FAERS Safety Report 6881156-8 (Version None)
Quarter: 2010Q3

REPORT INFORMATION
  Report Type: 
  Country: None (occurrence: None)
  Receive Date: 20100727
  Receipt Date: 20100715
  Transmission Date: 20110219
  Serious: No
  Sender: FDA-Public Use
  Company Number: US-BIOGENIDEC-2010BI020624

PATIENT
  Age: 35 Year
  Sex: Female

DRUGS (1)
  1. TYSABRI [Suspect]
     Indication: MULTIPLE SCLEROSIS
     Route: 030
     Dates: start: 20070608

REACTIONS (4)
  - BREAST DISCHARGE [None]
  - FEMALE STERILISATION [None]
  - MENSTRUATION IRREGULAR [None]
  - PITUITARY TUMOUR BENIGN [None]
